FAERS Safety Report 5046084-1 (Version None)
Quarter: 2006Q3

REPORT INFORMATION
  Report Type: 
  Country: None (occurrence: None)
  Receive Date: 20060710
  Receipt Date: 20060502
  Transmission Date: 20061208
  Serious: Yes (Disabling, Other)
  Sender: FDA-Public Use
  Company Number: US-MERCK-0605USA00586

PATIENT
  Age: 59 Year
  Sex: Female

DRUGS (7)
  1. FOSAMAX [Suspect]
     Route: 048
     Dates: end: 20060501
  2. IODINE [Concomitant]
     Indication: HYPOTHYROIDISM
     Route: 048
  3. PROGESTERONE [Concomitant]
     Route: 061
  4. OMEGA-3 MARINE TRIGLYCERIDES [Concomitant]
     Route: 065
  5. CALCIUM (UNSPECIFIED) [Concomitant]
     Route: 065
  6. VITAMINS (UNSPECIFIED) [Concomitant]
     Route: 065
  7. PREMARIN [Concomitant]
     Route: 065

REACTIONS (1)
  - RETINAL DETACHMENT [None]
